FAERS Safety Report 10395303 (Version 11)
Quarter: 2015Q3

REPORT INFORMATION
  Report Type: Report from Study
  Country: CN (occurrence: CN)
  Receive Date: 20140820
  Receipt Date: 20150821
  Transmission Date: 20151125
  Serious: Yes (Death, Hospitalization, Other)
  Sender: FDA-Public Use
  Company Number: CN-BAYER-2014-123717

PATIENT
  Age: 54 Year
  Sex: Male
  Weight: 60 kg

DRUGS (31)
  1. RADIUM-223 DICHLORIDE [Suspect]
     Active Substance: RADIUM RA-223 DICHLORIDE
     Indication: METASTASES TO BONE
     Dosage: DAILY DOSE 3440 KBQ
     Route: 042
     Dates: start: 20140910, end: 20140910
  2. KABIVEN [Concomitant]
     Active Substance: AMINO ACIDS\ANHYDROUS DEXTROSE\CALCIUM CHLORIDE\MAGNESIUM SULFATE HEPTAHYDRATE\POTASSIUM CHLORIDE\SODIUM ACETATE\SODIUM GLYCEROPHOSPHATE ANHYDROUS\SOYBEAN OIL
     Indication: NUTRITIONAL SUPPLEMENTATION
     Dosage: DAILY DOSE 1440 ML
     Route: 042
     Dates: start: 20140823, end: 20140901
  3. MONTMORILLONITE [Concomitant]
     Active Substance: MONTMORILLONITE
     Indication: DIARRHOEA
     Dosage: TOTAL DAILY DOSE  6 G
     Route: 048
     Dates: start: 20140829, end: 20140901
  4. DEXAMETHASONE SODIUM PHOSPHATE. [Concomitant]
     Active Substance: DEXAMETHASONE SODIUM PHOSPHATE
     Indication: HYPERSENSITIVITY
     Dosage: 2 MG, UNK
     Route: 042
     Dates: start: 20141224, end: 20141224
  5. DEXAMETHASONE SODIUM PHOSPHATE. [Concomitant]
     Active Substance: DEXAMETHASONE SODIUM PHOSPHATE
     Indication: HYPERSENSITIVITY
     Dosage: 5 MG, UNK
     Route: 042
     Dates: start: 20141221, end: 20141221
  6. AZINTAMIDE [Concomitant]
     Active Substance: AZINTAMIDE
     Indication: CONSTIPATION
     Dosage: PRN
     Route: 048
     Dates: start: 20140901
  7. GLUCOSE W/SODIUM CHLORIDE [Concomitant]
     Indication: NUTRITIONAL SUPPLEMENTATION
     Dosage: TOTAL DAILY DOSE 500 ML
     Route: 042
     Dates: start: 20141025, end: 20141025
  8. AMINO ACID [Concomitant]
     Indication: NUTRITIONAL SUPPLEMENTATION
     Dosage: TOTAL DAILY DOSE 250 ML
     Route: 042
     Dates: start: 20141025, end: 20141025
  9. TRIPTORELIN ACETATE [Concomitant]
     Active Substance: TRIPTORELIN ACETATE
     Indication: PROSTATE CANCER
     Dosage: UNK
     Route: 030
     Dates: start: 20141224, end: 20141224
  10. RADIUM-223 DICHLORIDE [Suspect]
     Active Substance: RADIUM RA-223 DICHLORIDE
     Indication: PROSTATE CANCER STAGE IV
     Dosage: DAILY DOSE 3770 KBQ
     Route: 042
     Dates: start: 20140813, end: 20140813
  11. AZINTAMIDE [Concomitant]
     Active Substance: AZINTAMIDE
     Indication: CONSTIPATION
     Dosage: 3 TABLETS
     Route: 048
     Dates: start: 20140828, end: 20140901
  12. MORPHINE [Concomitant]
     Active Substance: MORPHINE
     Indication: PAIN
     Dosage: DAILY DOSE 140 MG
     Route: 048
     Dates: start: 20141116
  13. DUPHALAC [Concomitant]
     Active Substance: LACTULOSE
     Indication: CONSTIPATION
     Dosage: DAILY DOSE 20 MG
     Route: 048
     Dates: start: 201407, end: 20141025
  14. MONTMORILLONITE [Concomitant]
     Active Substance: MONTMORILLONITE
     Indication: DIARRHOEA
     Dosage: TOTAL DAILY DOSE  2 TABLETS
     Route: 048
     Dates: start: 20141025, end: 20141028
  15. DEXAMETHASONE SODIUM PHOSPHATE. [Concomitant]
     Active Substance: DEXAMETHASONE SODIUM PHOSPHATE
     Indication: HYPERSENSITIVITY
     Dosage: 2 MG, UNK
     Route: 042
     Dates: start: 20141220, end: 20141220
  16. RADIUM-223 DICHLORIDE [Suspect]
     Active Substance: RADIUM RA-223 DICHLORIDE
     Indication: PROSTATE CANCER STAGE IV
     Dosage: DAILY DOSE 3070 KBQ
     Route: 042
     Dates: start: 20141128, end: 20141128
  17. ONDANSETRON HYDROCHLORIDE. [Concomitant]
     Active Substance: ONDANSETRON HYDROCHLORIDE
     Indication: VOMITING
     Dosage: DAILY DOSE 16 MG
     Route: 048
     Dates: start: 20140829, end: 20140901
  18. ONDANSETRON HYDROCHLORIDE. [Concomitant]
     Active Substance: ONDANSETRON HYDROCHLORIDE
     Indication: NAUSEA
     Dosage: PRN
     Route: 048
     Dates: start: 20140901
  19. AZINTAMIDE [Concomitant]
     Active Substance: AZINTAMIDE
     Indication: CONSTIPATION
     Dosage: 2 TABLETS
     Route: 048
     Dates: start: 20141101
  20. TRAMADOL. [Concomitant]
     Active Substance: TRAMADOL
     Indication: PAIN
     Dosage: DAILY DOSE 200 MG
     Route: 048
     Dates: start: 20140809
  21. IMIPENEM AND CILASTATIN [Concomitant]
     Active Substance: CILASTATIN SODIUM\IMIPENEM
     Indication: ANTIBIOTIC PROPHYLAXIS
     Dosage: 2000 MG, UNK
     Route: 042
     Dates: start: 20141225
  22. MORPHINE [Concomitant]
     Active Substance: MORPHINE
     Indication: PAIN
     Dosage: PRN
     Route: 048
     Dates: start: 20140901
  23. CEFTAZIDIME. [Concomitant]
     Active Substance: CEFTAZIDIME
     Indication: ANTIBIOTIC THERAPY
     Dosage: 4 G, UNK
     Route: 042
     Dates: start: 20141220, end: 20141224
  24. IMIPENEM AND CILASTATIN [Concomitant]
     Active Substance: CILASTATIN SODIUM\IMIPENEM
     Indication: ANTIBIOTIC PROPHYLAXIS
     Dosage: 1000 MG, UNK
     Route: 042
     Dates: start: 20141223, end: 20141223
  25. DUPHALAC [Concomitant]
     Active Substance: LACTULOSE
     Indication: CONSTIPATION
     Dosage: UNK, PRN
     Route: 048
     Dates: start: 20141110
  26. NORFLOXACIN [Concomitant]
     Active Substance: NORFLOXACIN
     Indication: DIARRHOEA
     Dosage: UNK UNK, PRN
     Route: 048
     Dates: start: 20141025, end: 20141105
  27. BACILLUS LICHENFORMIS [Concomitant]
     Indication: DIARRHOEA
     Dosage: UNK UNK, PRN
     Route: 048
     Dates: start: 20141025, end: 20141028
  28. DOMPERIDONE [Concomitant]
     Active Substance: DOMPERIDONE
     Indication: DYSPEPSIA
     Dosage: PRN
     Route: 048
     Dates: start: 20141101
  29. ZOLEDRONIC ACID [Concomitant]
     Active Substance: ZOLEDRONIC ACID
     Indication: ANALGESIC THERAPY
     Dosage: 4 MG,
     Dates: start: 20141224, end: 20141224
  30. ONDANSETRON HYDROCHLORIDE. [Concomitant]
     Active Substance: ONDANSETRON HYDROCHLORIDE
     Indication: NAUSEA
     Dosage: DAILY DOSE 8 MG
     Route: 048
     Dates: start: 20140822, end: 20140825
  31. IMIPENEM AND CILASTATIN [Concomitant]
     Active Substance: CILASTATIN SODIUM\IMIPENEM
     Indication: ANTIBIOTIC PROPHYLAXIS
     Dosage: 1500 MG, UNK
     Route: 042
     Dates: start: 20141224, end: 20141224

REACTIONS (7)
  - Death [Fatal]
  - Pain [Recovered/Resolved]
  - Decreased appetite [Recovering/Resolving]
  - Headache [Recovered/Resolved]
  - Back pain [Recovered/Resolved]
  - Platelet count decreased [Not Recovered/Not Resolved]
  - Anaemia [Recovering/Resolving]

NARRATIVE: CASE EVENT DATE: 20140816
